FAERS Safety Report 9061703 (Version 2)
Quarter: 2013Q1

REPORT INFORMATION
  Report Type: Spontaneous
  Country: US (occurrence: None)
  Receive Date: 20130122
  Receipt Date: 20130220
  Transmission Date: 20140127
  Serious: Yes (Death)
  Sender: FDA-Public Use
  Company Number: AUR-APL-2013-00516

PATIENT
  Age: 64 Year
  Sex: Female

DRUGS (22)
  1. VENLAFAXINE [Suspect]
     Indication: PRODUCT USED FOR UNKNOWN INDICATION
     Dosage: UNKNOWN
  2. NITROFURANTOIN [Suspect]
     Dosage: UNKNOWN
  3. DICLOFENAC (DICLOFENAC) [Suspect]
     Dosage: UNKNOWN
  4. ACETAMINOPHEN/ HYDROCODONE [Suspect]
     Dosage: UNKNOWN
  5. ACETAMINOPHEN/PROPOXYPHENE [Suspect]
     Dosage: UNKNOWN
  6. SOLIFENACIN [Suspect]
     Dosage: ORAL
     Route: 048
  7. LAMOTRIGINE (LAMOTRIGINE) [Suspect]
     Dosage: UNKNOWN
  8. HYDROCHLOROTHIAZIDE (HYDROCHLOROTHIAZIDE) [Suspect]
     Dosage: UNKNOWN
  9. CIPROFLOXACIN (CIPROFLOXACIN) [Suspect]
     Dosage: UNKNOWN
  10. NAPROXEN (NAPROXEN) [Suspect]
     Dosage: UNKNOWN
  11. ESCITALOPRAM [Suspect]
     Dosage: UNKNOWN
  12. DESIPRAMINE (DESIPRAMINE) (DESIPRAMINE) [Suspect]
     Dosage: UNKNOWN
     Route: 048
  13. ROSUVASTATIN (ROSUVASTATIN) [Suspect]
     Dosage: UNKNOWN
  14. DILTIAZEM [Suspect]
     Dosage: UNKNOWN
  15. LANSOPRAZOLE (LANSOPRAZOLE) [Suspect]
     Dosage: UNKNOWN
  16. ARMODAFINIL [Suspect]
     Dosage: UNKNOWN
  17. PANTOPRAZOLE (PANTOPRAZOLE) [Suspect]
     Dosage: UNKNOWN
  18. UNSPECIFIED INGREDIENT [Suspect]
     Dosage: UNKNOWN
  19. ESCITALOPRAM (ESCITALOPRAM) [Suspect]
     Dosage: UNKNOWN
  20. TRIFLUOPERAZINE [Suspect]
     Dosage: UNKNOWN
  21. POTASSIUM CHLORIDE (POTASSIUM CHLORIDE) [Suspect]
     Dosage: UNKNOWN
  22. PROGESTIN (PROGESTERONE) [Suspect]

REACTIONS (2)
  - Completed suicide [None]
  - Toxicity to various agents [None]
